FAERS Safety Report 8346189 (Version 4)
Quarter: 2013Q1

REPORT INFORMATION
  Report Type: Spontaneous
  Country: IE (occurrence: IE)
  Receive Date: 20120120
  Receipt Date: 20130114
  Transmission Date: 20140127
  Serious: Yes (Death, Other)
  Sender: FDA-Public Use
  Company Number: PHFR2011IE007192

PATIENT
  Sex: Male

DRUGS (9)
  1. CLOZARIL [Suspect]
     Indication: SCHIZOPHRENIA
     Dosage: 250 MG NIGHT
     Route: 048
     Dates: start: 20110825
  2. CLOZARIL [Suspect]
     Dosage: 250 MG, NIGHT
     Route: 048
  3. EFEXOR XL [Suspect]
     Indication: SCHIZOPHRENIA
     Dosage: 150 MG, MANE
  4. PROCYCLIDINE [Suspect]
     Indication: SCHIZOPHRENIA
     Dosage: 5 MG, MANE
  5. FLURAZEPAM [Suspect]
  6. METHADONE [Suspect]
  7. OLANZAPINE [Concomitant]
     Indication: SCHIZOPHRENIA
     Dosage: 30 MG, NOCTE
  8. ABILIFY [Concomitant]
     Indication: SCHIZOPHRENIA
     Dosage: 10 MG, MANE
  9. ZOPICLONE [Concomitant]
     Indication: SCHIZOPHRENIA
     Dosage: 11.25 MG, NOCTE

REACTIONS (3)
  - Accidental death [Fatal]
  - Toxicity to various agents [Unknown]
  - Aspiration [Unknown]
